FAERS Safety Report 6588401-7 (Version None)
Quarter: 2010Q1

REPORT INFORMATION
  Report Type: 
  Country: None (occurrence: None)
  Receive Date: 20100218
  Receipt Date: 20091102
  Transmission Date: 20100710
  Serious: No
  Sender: FDA-Public Use
  Company Number: US-ALLERGAN-0915120US

PATIENT
  Age: 45 Year
  Sex: Male

DRUGS (2)
  1. BOTOX COSMETIC [Suspect]
     Indication: SKIN WRINKLING
     Dosage: UNK
     Route: 030
     Dates: start: 20091028, end: 20091028
  2. KLONOPIN [Concomitant]
     Dosage: 0.5 MG, QD

REACTIONS (1)
  - HEADACHE [None]
